FAERS Safety Report 15347683 (Version 1)
Quarter: 2018Q3

REPORT INFORMATION
  Report Type: Report from Study
  Country: IT (occurrence: IT)
  Receive Date: 20180904
  Receipt Date: 20180904
  Transmission Date: 20181010
  Serious: Yes (Hospitalization)
  Sender: FDA-Public Use
  Company Number: IT-TEVA-792394ACC

PATIENT
  Age: 27 Year
  Sex: Female

DRUGS (1)
  1. COPAXONE [Suspect]
     Active Substance: GLATIRAMER ACETATE
     Indication: MULTIPLE SCLEROSIS
     Dosage: 40 MG/ML
     Route: 058
     Dates: start: 20170620

REACTIONS (3)
  - Injection site erythema [Recovered/Resolved]
  - Product substitution issue [Unknown]
  - Injection site oedema [Recovered/Resolved]

NARRATIVE: CASE EVENT DATE: 20170624
